FAERS Safety Report 24028442 (Version 2)
Quarter: 2024Q3

REPORT INFORMATION
  Report Type: Report from Study
  Country: BR (occurrence: BR)
  Receive Date: 20240628
  Receipt Date: 20240704
  Transmission Date: 20241017
  Serious: Yes (Death, Hospitalization, Disabling)
  Sender: NOVARTIS
  Company Number: BR-002147023-NVSC2024BR124679

PATIENT
  Age: 63 Year
  Sex: Female
  Weight: 70 kg

DRUGS (2)
  1. TAFINLAR [Suspect]
     Active Substance: DABRAFENIB MESYLATE
     Indication: Product used for unknown indication
     Dosage: 2 DOSAGE FORM, Q12H (THROUGH THE PROBE) (2 TABLETS EVERY 12 HOURS)
     Route: 065
     Dates: start: 20240517, end: 20240531
  2. MEKINIST [Suspect]
     Active Substance: TRAMETINIB DIMETHYL SULFOXIDE
     Indication: Product used for unknown indication
     Dosage: 1 DOSAGE FORM, QD (THROUGH THE PROBE) (1 TABLET A DAY)
     Route: 065
     Dates: start: 20240517, end: 20240531

REACTIONS (6)
  - Brain neoplasm [Fatal]
  - Depressed level of consciousness [Fatal]
  - Metastases to meninges [Fatal]
  - Malignant melanoma [Fatal]
  - Gait disturbance [Unknown]
  - Balance disorder [Unknown]
